FAERS Safety Report 6387493-8 (Version None)
Quarter: 2009Q4

REPORT INFORMATION
  Report Type: 
  Country: None (occurrence: None)
  Receive Date: 20091005
  Receipt Date: 20090924
  Transmission Date: 20100525
  Serious: Yes (Hospitalization)
  Sender: FDA-Public Use
  Company Number: US-BIOGENIDEC-2009BI024844

PATIENT
  Age: 52 Year
  Sex: Female

DRUGS (5)
  1. AVONEX [Suspect]
     Indication: MULTIPLE SCLEROSIS
     Route: 030
     Dates: start: 20060617, end: 20070209
  2. AVONEX [Suspect]
     Route: 030
     Dates: start: 20080919
  3. COPAXONE [Concomitant]
     Dates: start: 20070216
  4. COPAXONE [Concomitant]
  5. REBIF [Concomitant]

REACTIONS (2)
  - HYPOTENSION [None]
  - RENAL FAILURE ACUTE [None]
